FAERS Safety Report 9495940 (Version 3)
Quarter: 2015Q3

REPORT INFORMATION
  Report Type: Spontaneous
  Country: US (occurrence: US)
  Receive Date: 20130904
  Receipt Date: 20150818
  Transmission Date: 20151125
  Serious: Yes (Death, Hospitalization)
  Sender: FDA-Public Use
  Company Number: US-ROCHE-1269963

PATIENT
  Age: 52 Year
  Sex: Female

DRUGS (1)
  1. XELODA [Suspect]
     Active Substance: CAPECITABINE
     Indication: BREAST CANCER METASTATIC
     Route: 065

REACTIONS (7)
  - Nervous system disorder [Fatal]
  - Epistaxis [Unknown]
  - Subdural haematoma [Fatal]
  - Myocardial infarction [Fatal]
  - Diarrhoea [Unknown]
  - Central nervous system haemorrhage [Fatal]
  - Hypotension [Fatal]

NARRATIVE: CASE EVENT DATE: 20130719
